FAERS Safety Report 6944899-3 (Version None)
Quarter: 2010Q3

REPORT INFORMATION
  Report Type: 
  Country: None (occurrence: None)
  Receive Date: 20100824
  Receipt Date: 20100810
  Transmission Date: 20110219
  Serious: Yes (Hospitalization)
  Sender: FDA-Public Use
  Company Number: MC201000084

PATIENT
  Age: 80 Year
  Sex: Female
  Weight: 65 kg

DRUGS (17)
  1. ANGIOMAX [Suspect]
     Indication: ARTERIOGRAM CORONARY
     Dosage: SEE IMAGE
     Route: 042
     Dates: start: 20100226, end: 20100226
  2. ASPIRIN [Suspect]
     Indication: CORONARY ARTERY DISEASE
     Dosage: 100 MG, QD (AM), ORAL
     Route: 048
     Dates: start: 20100226
  3. CLOPIDOGREL [Suspect]
     Indication: ACUTE MYOCARDIAL INFARCTION
     Dosage: 600 MG, SINGLE, ORAL; 75 MG, QD (AM), ORAL
     Route: 048
     Dates: start: 20100226, end: 20100226
  4. CLOPIDOGREL [Suspect]
     Indication: PERCUTANEOUS CORONARY INTERVENTION
     Dosage: 600 MG, SINGLE, ORAL; 75 MG, QD (AM), ORAL
     Route: 048
     Dates: start: 20100226, end: 20100226
  5. CLOPIDOGREL [Suspect]
     Indication: ACUTE MYOCARDIAL INFARCTION
     Dosage: 600 MG, SINGLE, ORAL; 75 MG, QD (AM), ORAL
     Route: 048
     Dates: start: 20100226
  6. CLOPIDOGREL [Suspect]
     Indication: PERCUTANEOUS CORONARY INTERVENTION
     Dosage: 600 MG, SINGLE, ORAL; 75 MG, QD (AM), ORAL
     Route: 048
     Dates: start: 20100226
  7. HEPARIN [Suspect]
     Indication: ACUTE MYOCARDIAL INFARCTION
     Dosage: 1000 MG, UNITS/HR, INTRAVENOUS
     Route: 042
     Dates: start: 20100226, end: 20100226
  8. FRAXIPARIN (NADROPARIN CALCIUM) [Suspect]
     Indication: ATRIAL FIBRILLATION
     Dosage: 0.40 UNITS, QD
     Dates: start: 20100223, end: 20100225
  9. MARCUMAR [Suspect]
     Indication: ATRIAL FIBRILLATION
     Dosage: INR RELATED REGIMEN, ORAL
     Route: 048
  10. ALLOPURINOL [Concomitant]
  11. BISOPROLOL (BISOPROLOL HEMIFUMARATE) [Concomitant]
  12. TELMISARTAN [Concomitant]
  13. FUROSEMIDE [Concomitant]
  14. SIMVASTATIN [Concomitant]
  15. PANTOPRAZOL (PANTOPRAZOLE SODIUM) [Concomitant]
  16. SYMBICORT [Concomitant]
  17. OPIPRAMOL (OPIPRAMOL) [Concomitant]

REACTIONS (8)
  - ACTIVATED PARTIAL THROMBOPLASTIN TIME PROLONGED [None]
  - ACUTE MYOCARDIAL INFARCTION [None]
  - GASTRIC ULCER HAEMORRHAGE [None]
  - GASTROINTESTINAL HAEMORRHAGE [None]
  - HAEMOGLOBIN DECREASED [None]
  - PROCTITIS HAEMORRHAGIC [None]
  - STRESS [None]
  - VENTRICULAR HYPOKINESIA [None]
